FAERS Safety Report 18948927 (Version 2)
Quarter: 2021Q1

REPORT INFORMATION
  Report Type: Report from Study
  Country: PK (occurrence: PK)
  Receive Date: 20210227
  Receipt Date: 20210305
  Transmission Date: 20210420
  Serious: Yes (Death, Hospitalization, Other)
  Sender: FDA-Public Use
  Company Number: NVSC2021PK046017

PATIENT
  Sex: Female

DRUGS (1)
  1. ZOMETA [Suspect]
     Active Substance: ZOLEDRONIC ACID
     Indication: NEOPLASM MALIGNANT
     Dosage: 4MG/100ML, Q3MO ((4 MG/ 100 ML, 1 VIAL)
     Route: 042
     Dates: start: 20190919

REACTIONS (4)
  - Breast cancer [Fatal]
  - Hepatic failure [Fatal]
  - Haemorrhage [Unknown]
  - Product use in unapproved indication [Unknown]
